FAERS Safety Report 14915657 (Version 1)
Quarter: 2018Q2

REPORT INFORMATION
  Report Type: Spontaneous
  Country: US (occurrence: US)
  Receive Date: 20180518
  Receipt Date: 20180518
  Transmission Date: 20180711
  Serious: Yes (Death)
  Sender: FDA-Public Use
  Company Number: US-INCYTE CORPORATION-2018IN004912

PATIENT

DRUGS (1)
  1. JAKAVI [Suspect]
     Active Substance: RUXOLITINIB
     Indication: PRODUCT USED FOR UNKNOWN INDICATION
     Dosage: 5 MG, BID
     Route: 065

REACTIONS (9)
  - Cryptococcosis [Fatal]
  - Encephalopathy [Fatal]
  - Lymphadenopathy [Fatal]
  - Pleural effusion [Fatal]
  - Night sweats [Fatal]
  - Weight decreased [Fatal]
  - Fatigue [Fatal]
  - Pyrexia [Fatal]
  - Decreased appetite [Fatal]
